FAERS Safety Report 7818962-9 (Version None)
Quarter: 2011Q4

REPORT INFORMATION
  Report Type: 
  Country: None (occurrence: None)
  Receive Date: 20111018
  Receipt Date: 20111007
  Transmission Date: 20120403
  Serious: Yes (Other)
  Sender: FDA-Public Use
  Company Number: GB-JNJFOC-20111004322

PATIENT
  Sex: Female

DRUGS (1)
  1. REMICADE [Suspect]
     Indication: PRODUCT USED FOR UNKNOWN INDICATION
     Route: 042

REACTIONS (6)
  - TACHYCARDIA [None]
  - FLUSHING [None]
  - EMOTIONAL DISTRESS [None]
  - HYPOTENSION [None]
  - SWELLING FACE [None]
  - INFUSION RELATED REACTION [None]
